FAERS Safety Report 25608361 (Version 1)
Quarter: 2025Q3

REPORT INFORMATION
  Report Type: Spontaneous
  Country: US (occurrence: US)
  Receive Date: 20250726
  Receipt Date: 20250726
  Transmission Date: 20251021
  Serious: Yes (Other)
  Sender: ALEXION PHARMACEUTICALS
  Company Number: US-AstraZeneca-CH-00915230A

PATIENT
  Sex: Female
  Weight: 78 kg

DRUGS (7)
  1. FASENRA [Suspect]
     Active Substance: BENRALIZUMAB
     Indication: Asthma
     Dates: start: 20231110, end: 20250314
  2. FASENRA [Suspect]
     Active Substance: BENRALIZUMAB
  3. CLARITIN [Concomitant]
     Active Substance: LORATADINE
     Route: 065
  4. FAMOTIDINE [Concomitant]
     Active Substance: FAMOTIDINE
     Route: 065
  5. VITAMIN D3 [Concomitant]
     Active Substance: CHOLECALCIFEROL
     Route: 065
  6. VITAMIN C [Concomitant]
     Active Substance: ASCORBIC ACID
     Route: 065
  7. LYRICA [Concomitant]
     Active Substance: PREGABALIN
     Route: 065

REACTIONS (7)
  - Hypersensitivity [Not Recovered/Not Resolved]
  - Chronic kidney disease [Unknown]
  - Gastritis [Unknown]
  - Asthma [Unknown]
  - Pruritus [Not Recovered/Not Resolved]
  - Dyspepsia [Unknown]
  - Helicobacter infection [Unknown]

NARRATIVE: CASE EVENT DATE: 20250101
